FAERS Safety Report 4998172-3 (Version None)
Quarter: 2006Q2

REPORT INFORMATION
  Report Type: 
  Country: None (occurrence: None)
  Receive Date: 20060510
  Receipt Date: 20051130
  Transmission Date: 20061013
  Serious: Yes (Hospitalization)
  Sender: FDA-Public Use
  Company Number: US-MERCK-0512USA00267

PATIENT
  Age: 63 Year
  Sex: Female
  Weight: 57 kg

DRUGS (2)
  1. VIOXX [Suspect]
     Indication: EXERCISE ADEQUATE
     Route: 048
  2. VIOXX [Suspect]
     Indication: MUSCULOSKELETAL DISORDER
     Route: 048

REACTIONS (27)
  - ABDOMINAL PAIN [None]
  - ANXIETY [None]
  - ATELECTASIS [None]
  - BACK PAIN [None]
  - CARDIAC DISORDER [None]
  - CEREBROVASCULAR ACCIDENT [None]
  - CHEST PAIN [None]
  - CHRONIC OBSTRUCTIVE PULMONARY DISEASE [None]
  - DIABETES MELLITUS [None]
  - DISORIENTATION [None]
  - DIZZINESS [None]
  - DYSPNOEA [None]
  - FALL [None]
  - HEADACHE [None]
  - HYPERLIPIDAEMIA [None]
  - HYPERTENSION [None]
  - HYPOKALAEMIA [None]
  - INSOMNIA [None]
  - NEUROPATHY [None]
  - PAIN IN EXTREMITY [None]
  - PNEUMONIA [None]
  - RADICULOPATHY [None]
  - RESPIRATORY FAILURE [None]
  - RHINITIS ALLERGIC [None]
  - SYNCOPE [None]
  - THROMBOCYTHAEMIA [None]
  - WHEEZING [None]
